FAERS Safety Report 15193241 (Version 1)
Quarter: 2018Q3

REPORT INFORMATION
  Report Type: Spontaneous
  Country: US (occurrence: US)
  Receive Date: 20180626
  Receipt Date: 20180626
  Transmission Date: 20181010
  Serious: Yes (Death)
  Sender: FDA-Public Use
  Company Number: None

PATIENT
  Age: 65 Year
  Sex: Female
  Weight: 126 kg

DRUGS (4)
  1. CELEBREX 200MG BID [Concomitant]
  2. VERAPAMIL 180MG DAILY [Concomitant]
  3. COSENTYX [Suspect]
     Active Substance: SECUKINUMAB
     Indication: ANKYLOSING SPONDYLITIS
     Dosage: ?          OTHER FREQUENCY:EVERY 4 WEEKS;?
     Route: 058
     Dates: start: 20171120, end: 20180605
  4. METOPROLOL 200MG DAILY [Concomitant]

REACTIONS (7)
  - Anuria [None]
  - Unresponsive to stimuli [None]
  - Renal impairment [None]
  - Mental status changes [None]
  - Cardiac arrest [None]
  - Metabolic acidosis [None]
  - Pulseless electrical activity [None]

NARRATIVE: CASE EVENT DATE: 20180615
